FAERS Safety Report 15941847 (Version 1)
Quarter: 2019Q1

REPORT INFORMATION
  Report Type: Spontaneous
  Country: US (occurrence: US)
  Receive Date: 20190211
  Receipt Date: 20190211
  Transmission Date: 20190417
  Serious: Yes (Other)
  Sender: FDA-Public Use
  Company Number: None

PATIENT
  Sex: Female

DRUGS (4)
  1. CAMILA [Concomitant]
     Active Substance: NORETHINDRONE
  2. HUMIRA [Suspect]
     Active Substance: ADALIMUMAB
     Indication: COLITIS ULCERATIVE
     Dosage: ?          OTHER FREQUENCY:QOW;?
     Route: 058
     Dates: start: 20180116
  3. VITAMIN D [Concomitant]
     Active Substance: CHOLECALCIFEROL
  4. PRENA1 TRUE MIS [Concomitant]

REACTIONS (3)
  - Maternal exposure during pregnancy [None]
  - Therapy cessation [None]
  - Maternal exposure before pregnancy [None]
